FAERS Safety Report 4426929-6 (Version None)
Quarter: 2004Q3

REPORT INFORMATION
  Report Type: 
  Country: None (occurrence: None)
  Receive Date: 20040811
  Receipt Date: 20040730
  Transmission Date: 20050211
  Serious: Yes (Hospitalization, Other)
  Sender: FDA-Public Use
  Company Number: 2004038076

PATIENT
  Age: 76 Year
  Sex: Male

DRUGS (13)
  1. NORVASC [Suspect]
     Indication: HYPERTENSION
     Dosage: 5 MG (5 MG, 1 IN 1 D), ORAL
     Route: 048
  2. IRON [Concomitant]
  3. TAMSULOSIN [Concomitant]
  4. FLUTICASONE PROPIONATE [Concomitant]
  5. TRIOBE (CYANOCOBALAMIN, FOLIC ACID, PYRIDOXINE) [Concomitant]
  6. HYDROMORPHONE HYDROCHLORIDE [Concomitant]
  7. VICODIN [Concomitant]
  8. IPATROPIUM BROMIDE [Concomitant]
  9. POTASSIUM [Concomitant]
  10. SIMVASTATIN [Concomitant]
  11. ALL OTHER THERAPEUTIC PRODUCTS [Concomitant]
  12. RIFAMPICIN [Concomitant]
  13. FINASTERIDE [Concomitant]

REACTIONS (3)
  - BLOOD PRESSURE INADEQUATELY CONTROLLED [None]
  - CARDIAC FAILURE CONGESTIVE [None]
  - PNEUMONIA [None]
